FAERS Safety Report 8042741-3 (Version None)
Quarter: 2012Q1

REPORT INFORMATION
  Report Type: 
  Country: None (occurrence: None)
  Receive Date: 20120112
  Receipt Date: 20120103
  Transmission Date: 20120608
  Serious: Yes (Hospitalization, Other)
  Sender: FDA-Public Use
  Company Number: US-ASTRAZENECA-2011SE59329

PATIENT
  Age: 37 Year
  Sex: Male

DRUGS (1)
  1. NEXIUM [Suspect]
     Route: 048

REACTIONS (4)
  - IRRITABLE BOWEL SYNDROME [None]
  - BRAIN NEOPLASM MALIGNANT [None]
  - IMPAIRED GASTRIC EMPTYING [None]
  - CONVULSION [None]
